FAERS Safety Report 20775925 (Version 3)
Quarter: 2022Q2

REPORT INFORMATION
  Report Type: Report from Study
  Country: GB (occurrence: GB)
  Receive Date: 20220502
  Receipt Date: 20220602
  Transmission Date: 20220721
  Serious: Yes (Hospitalization)
  Sender: FDA-Public Use
  Company Number: GB-PFIZER INC-202200601730

PATIENT
  Age: 81 Year
  Sex: Female
  Weight: 64.25 kg

DRUGS (6)
  1. PALBOCICLIB [Suspect]
     Active Substance: PALBOCICLIB
     Indication: Breast cancer
     Dosage: UNK, ONCE DAILY, 3 WEEKS ON/1 WEEK OFF EVERY 28 DAYS CYCLE
     Route: 048
     Dates: start: 20140611, end: 20220407
  2. LETROZOLE [Suspect]
     Active Substance: LETROZOLE
     Indication: Breast cancer
     Dosage: UNK, ONCE DAILY, CONTINUOUSLY
     Route: 048
     Dates: start: 20140611
  3. RIVAROXABAN [Concomitant]
     Active Substance: RIVAROXABAN
     Dosage: 20 MG, ONCE DAILY
     Route: 048
     Dates: end: 20220407
  4. BISOPROLOL [Concomitant]
     Active Substance: BISOPROLOL
     Dosage: 1.25 MG, ONCE DAILY
     Route: 048
  5. CALCIUM CARBONATE\CHOLECALCIFEROL [Concomitant]
     Active Substance: CALCIUM CARBONATE\CHOLECALCIFEROL
     Dosage: 2 TABLETS, 2X/DAY
     Route: 048
  6. AMDINOCILLIN PIVOXIL [Concomitant]
     Active Substance: AMDINOCILLIN PIVOXIL
     Indication: Urinary tract infection
     Dosage: 200 MG, TWICE DAILY
     Route: 048
     Dates: start: 20220404, end: 20220407

REACTIONS (2)
  - Malignant pleural effusion [Recovering/Resolving]
  - Pleural effusion [Recovered/Resolved with Sequelae]

NARRATIVE: CASE EVENT DATE: 20220407
